FAERS Safety Report 15183783 (Version 1)
Quarter: 2018Q3

REPORT INFORMATION
  Report Type: Report from Study
  Country: BR (occurrence: BR)
  Receive Date: 20180723
  Receipt Date: 20180723
  Transmission Date: 20181010
  Serious: Yes (Hospitalization)
  Sender: FDA-Public Use
  Company Number: BR-UCBSA-2018028829

PATIENT
  Sex: Female
  Weight: 65 kg

DRUGS (1)
  1. LEVETIRACETAM. [Suspect]
     Active Substance: LEVETIRACETAM
     Indication: SEIZURE
     Dosage: 1 TABLET OF 250MG IN MORNING AND 2 TABLETS OF 250MG IN EVENING
     Route: 048
     Dates: start: 201801

REACTIONS (2)
  - Off label use [Unknown]
  - Neurodegenerative disorder [Unknown]

NARRATIVE: CASE EVENT DATE: 2018
